FAERS Safety Report 4665723-8 (Version None)
Quarter: 2005Q2

REPORT INFORMATION
  Report Type: 
  Country: None (occurrence: None)
  Receive Date: 20050519
  Receipt Date: 20050228
  Transmission Date: 20051028
  Serious: Yes (Death)
  Sender: FDA-Public Use
  Company Number: GB-BOEHRINGER INGELHEIM PHARMACEUTICALS, INC.-2005-UK-00349UK

PATIENT
  Sex: Male

DRUGS (8)
  1. TIOTROPIUM (00015/0190/A) [Suspect]
     Route: 055
  2. SALMETEROL XINAFOATE [Suspect]
     Dosage: 25MCG METERED DOSE INHALER
     Route: 055
  3. MONTELUKAST SODIUM [Suspect]
     Route: 065
  4. QUININE BISULPHATE [Suspect]
  5. BECLOMETHASONE DIPROPIONATE [Suspect]
     Dosage: 200MCG/PUFF AS REQUIRED
  6. SALBUTAMOL CFC FREE [Suspect]
     Dosage: 100MCG/PUFF AS REQUIRED
     Route: 055
  7. SERETIDE CFC FREE [Suspect]
     Dosage: 125 EVOHALER, 2 TWICE DAILY
     Route: 055
  8. OXYGEN [Suspect]
     Dosage: 2 LITRES PER MINUTE FOR 15HOURS PER DAY

REACTIONS (2)
  - CHRONIC OBSTRUCTIVE PULMONARY DISEASE [None]
  - DIARRHOEA [None]
